FAERS Safety Report 21914185 (Version 4)
Quarter: 2023Q2

REPORT INFORMATION
  Report Type: Spontaneous
  Country: US (occurrence: US)
  Receive Date: 20230126
  Receipt Date: 20230518
  Transmission Date: 20230722
  Serious: Yes (Death, Other)
  Sender: FDA-Public Use
  Company Number: US-MTPC-MTDA2023-0001976

PATIENT
  Age: 60 Year
  Sex: Male

DRUGS (2)
  1. RADICAVA [Suspect]
     Active Substance: EDARAVONE
     Indication: Amyotrophic lateral sclerosis
     Dosage: NORMAL DOSING
     Route: 048
     Dates: start: 202208
  2. RADICAVA [Suspect]
     Active Substance: EDARAVONE
     Indication: Amyotrophic lateral sclerosis
     Dosage: NORMAL DOSING
     Route: 048
     Dates: start: 202208

REACTIONS (2)
  - Respiratory distress [Fatal]
  - COVID-19 [Unknown]

NARRATIVE: CASE EVENT DATE: 20221205
